FAERS Safety Report 15113623 (Version 5)
Quarter: 2020Q1

REPORT INFORMATION
  Report Type: Spontaneous
  Country: AU (occurrence: AU)
  Receive Date: 20180706
  Receipt Date: 20200129
  Transmission Date: 20200409
  Serious: Yes (Hospitalization, Other)
  Sender: FDA-Public Use
  Company Number: AU-ACTELION-A-CH2018-174791

PATIENT
  Age: 66 Year
  Sex: Female

DRUGS (17)
  1. VELETRI [Suspect]
     Active Substance: EPOPROSTENOL
     Dosage: 10 NG/KG, PER MIN
     Route: 042
  2. MOCLOBEMIDE [Concomitant]
     Active Substance: MOCLOBEMIDE
     Dosage: 600 MG, BID
  3. VELETRI [Suspect]
     Active Substance: EPOPROSTENOL
     Dosage: UNK
     Route: 042
     Dates: start: 20160106
  4. SPIRONOLACTONE. [Concomitant]
     Active Substance: SPIRONOLACTONE
     Dosage: 25 MG, QD
  5. CALCIUM CARBONATE. [Concomitant]
     Active Substance: CALCIUM CARBONATE
  6. FUROSEMIDE. [Concomitant]
     Active Substance: FUROSEMIDE
     Dosage: 40 MG, BID
  7. NITRAZEPAM [Concomitant]
     Active Substance: NITRAZEPAM
     Dosage: 5 MG, OD
  8. QUETIAPINE. [Concomitant]
     Active Substance: QUETIAPINE
     Dosage: 25 MG, OD
  9. VELETRI [Suspect]
     Active Substance: EPOPROSTENOL
     Dosage: 3.5 NG/KG, PER MIN
     Route: 042
  10. SILDENAFIL. [Suspect]
     Active Substance: SILDENAFIL
     Indication: PULMONARY ARTERIAL HYPERTENSION
     Dosage: UNK
     Route: 048
  11. POTASSIUM CHLORIDE. [Concomitant]
     Active Substance: POTASSIUM CHLORIDE
  12. VELETRI [Suspect]
     Active Substance: EPOPROSTENOL
     Indication: PULMONARY ARTERIAL HYPERTENSION
     Dosage: 1.5 MG, CONT INFUS
     Route: 042
     Dates: start: 20170105
  13. OPSUMIT [Suspect]
     Active Substance: MACITENTAN
     Indication: PULMONARY ARTERIAL HYPERTENSION
     Dosage: 10 MG, OD
     Route: 048
     Dates: start: 20161213
  14. ESOMEPRAZOLE. [Concomitant]
     Active Substance: ESOMEPRAZOLE MAGNESIUM
     Dosage: 40 MG, OD
  15. RANITIDINE. [Concomitant]
     Active Substance: RANITIDINE
     Dosage: 300 MG, OD
  16. MAGNESIUM ASPARTATE [Concomitant]
     Active Substance: MAGNESIUM ASPARTATE
     Dosage: 1000 MG, BID
  17. PARACETAMOL [Concomitant]
     Active Substance: ACETAMINOPHEN
     Dosage: 1330 MG, TID

REACTIONS (16)
  - Catheter site cellulitis [Recovered/Resolved]
  - Incorrect dose administered by device [Unknown]
  - Blood culture positive [Recovered/Resolved]
  - Staphylococcal infection [Recovered/Resolved]
  - Device leakage [Recovered/Resolved]
  - Headache [Recovered/Resolved]
  - Device issue [Unknown]
  - Palpitations [Recovered/Resolved]
  - Infection [Unknown]
  - Pseudomonas test positive [Unknown]
  - Catheter site infection [Recovered/Resolved]
  - Catheter site erythema [Unknown]
  - Sepsis [Unknown]
  - Underdose [Unknown]
  - Device related infection [Unknown]
  - Nausea [Recovered/Resolved]

NARRATIVE: CASE EVENT DATE: 20180628
